FAERS Safety Report 8114837-9 (Version None)
Quarter: 2012Q1

REPORT INFORMATION
  Report Type: 
  Country: None (occurrence: None)
  Receive Date: 20120206
  Receipt Date: 20120126
  Transmission Date: 20120608
  Serious: Yes (Hospitalization, Other)
  Sender: FDA-Public Use
  Company Number: CA-ABBOTT-12P-028-0889049-00

PATIENT
  Sex: Female

DRUGS (1)
  1. HUMIRA [Suspect]
     Indication: CROHN'S DISEASE
     Route: 058
     Dates: start: 20111017

REACTIONS (6)
  - PYREXIA [None]
  - ABDOMINAL PAIN UPPER [None]
  - HERNIA [None]
  - VOMITING [None]
  - INTESTINAL OBSTRUCTION [None]
  - NAUSEA [None]
